FAERS Safety Report 19025987 (Version 1)
Quarter: 2021Q1

REPORT INFORMATION
  Report Type: Spontaneous
  Country: US (occurrence: US)
  Receive Date: 20210318
  Receipt Date: 20210318
  Transmission Date: 20210420
  Serious: No
  Sender: FDA-Public Use
  Company Number: None

PATIENT
  Age: 50 Month

DRUGS (1)
  1. OCREVUS [Suspect]
     Active Substance: OCRELIZUMAB
     Indication: MULTIPLE SCLEROSIS
     Dosage: ?          QUANTITY:600 IV;OTHER FREQUENCY:EVERY 6 MONTHS;?
     Route: 042
     Dates: start: 20210212

REACTIONS (8)
  - Balance disorder [None]
  - Hypoaesthesia [None]
  - Quality of life decreased [None]
  - Dizziness [None]
  - Multiple sclerosis [None]
  - Fatigue [None]
  - Paraesthesia [None]
  - Pain [None]

NARRATIVE: CASE EVENT DATE: 20210212
